FAERS Safety Report 17503242 (Version 1)
Quarter: 2020Q1

REPORT INFORMATION
  Report Type: Spontaneous
  Country: DE (occurrence: DE)
  Receive Date: 20200305
  Receipt Date: 20200305
  Transmission Date: 20200409
  Serious: Yes (Other)
  Sender: FDA-Public Use
  Company Number: DE-TEVA-2020-DE-1195976

PATIENT
  Age: 72 Year
  Sex: Female

DRUGS (2)
  1. ATORVASTATIN [Concomitant]
     Active Substance: ATORVASTATIN
     Dosage: IN THE EVENING
     Dates: start: 2014
  2. VALSARTAN ABZ 80 MG [Suspect]
     Active Substance: VALSARTAN
     Route: 048

REACTIONS (4)
  - Mouth swelling [Recovering/Resolving]
  - Swelling face [Recovering/Resolving]
  - Pharyngeal swelling [Recovering/Resolving]
  - Swelling [Recovering/Resolving]
